FAERS Safety Report 13566361 (Version 1)
Quarter: 2017Q2

REPORT INFORMATION
  Report Type: Report from Study
  Country: US (occurrence: US)
  Receive Date: 20170521
  Receipt Date: 20170521
  Transmission Date: 20170830
  Serious: Yes (Death, Other)
  Sender: FDA-Public Use
  Company Number: US-MYLANLABS-2017M1028871

PATIENT

DRUGS (1)
  1. CLOZAPINE. [Suspect]
     Active Substance: CLOZAPINE
     Indication: PRODUCT USED FOR UNKNOWN INDICATION
     Dosage: 250 MG, QD
     Route: 048
     Dates: start: 20121026, end: 201703

REACTIONS (4)
  - Constipation [Recovered/Resolved]
  - Infection [Fatal]
  - Intestinal obstruction [Unknown]
  - Hospice care [Unknown]

NARRATIVE: CASE EVENT DATE: 2015
